FAERS Safety Report 14949238 (Version 1)
Quarter: 2018Q2

REPORT INFORMATION
  Report Type: Spontaneous
  Country: TR (occurrence: TR)
  Receive Date: 20180529
  Receipt Date: 20180529
  Transmission Date: 20180711
  Serious: Yes (Hospitalization, Other)
  Sender: FDA-Public Use
  Company Number: TR-GLAXOSMITHKLINE-TR2018GSK090285

PATIENT
  Age: 64 Year
  Sex: Male

DRUGS (1)
  1. VALACICLOVIR [Suspect]
     Active Substance: VALACYCLOVIR HYDROCHLORIDE
     Indication: HERPES ZOSTER
     Dosage: UNK
     Route: 048

REACTIONS (7)
  - Facial paresis [Recovered/Resolved]
  - Speech disorder [Recovered/Resolved]
  - Hypoaesthesia oral [Recovered/Resolved]
  - Rash vesicular [Recovered/Resolved]
  - Dysgeusia [Recovered/Resolved]
  - Lagophthalmos [Recovered/Resolved]
  - Herpes zoster oticus [Recovered/Resolved]
